FAERS Safety Report 8296584-6 (Version None)
Quarter: 2012Q2

REPORT INFORMATION
  Report Type: 
  Country: None (occurrence: None)
  Receive Date: 20120418
  Receipt Date: 20120417
  Transmission Date: 20120825
  Serious: Yes (Life-Threatening)
  Sender: FDA-Public Use
  Company Number: JP-BAYER-2012-037134

PATIENT
  Age: 5 Month
  Sex: Female

DRUGS (9)
  1. DOPAMINE HCL [Suspect]
     Dosage: UNK
  2. ALDACTONE [Suspect]
     Dosage: UNK
     Route: 048
  3. MIDAZOLAM HCL [Suspect]
     Dosage: UNK
  4. ACETAMINOPHEN [Suspect]
     Dosage: UNK
     Route: 048
  5. HERBAL PREPARATION [Suspect]
     Dosage: UNK
     Route: 048
  6. UNFRACTIONATED HEPARIN [Suspect]
  7. ASPIRIN [Suspect]
     Indication: THROMBOSIS PROPHYLAXIS
     Dosage: UNK
     Route: 048
     Dates: start: 20111206, end: 20111207
  8. LASIX [Suspect]
     Route: 048
  9. PRECEDEX [Suspect]
     Dosage: UNK

REACTIONS (1)
  - HEPATITIS FULMINANT [None]
